FAERS Safety Report 16082681 (Version 1)
Quarter: 2019Q1

REPORT INFORMATION
  Report Type: Spontaneous
  Country: US (occurrence: US)
  Receive Date: 20190318
  Receipt Date: 20190318
  Transmission Date: 20190418
  Serious: No
  Sender: FDA-Public Use
  Company Number: US-TEVA-2019-US-1016888

PATIENT
  Sex: Female

DRUGS (1)
  1. PIMECROLIMUS. [Suspect]
     Active Substance: PIMECROLIMUS
     Route: 065

REACTIONS (3)
  - Skin burning sensation [Unknown]
  - Pain [Unknown]
  - Adverse event [Unknown]
